FAERS Safety Report 15180937 (Version 1)
Quarter: 2018Q3

REPORT INFORMATION
  Report Type: Spontaneous
  Country: GB (occurrence: GB)
  Receive Date: 20180723
  Receipt Date: 20180723
  Transmission Date: 20181010
  Serious: Yes (Other)
  Sender: FDA-Public Use
  Company Number: GB-MYLANLABS-2018M1055524

PATIENT
  Age: 70 Year
  Sex: Female

DRUGS (9)
  1. CLOZAPINE. [Suspect]
     Active Substance: CLOZAPINE
     Dosage: 125 MG, PM
     Route: 048
     Dates: end: 2018
  2. SERETIDE [Concomitant]
     Active Substance: FLUTICASONE PROPIONATE\SALMETEROL XINAFOATE
  3. CLOZAPINE. [Suspect]
     Active Substance: CLOZAPINE
     Indication: SCHIZOAFFECTIVE DISORDER
     Dosage: 75 MG, AM
     Route: 048
     Dates: end: 2018
  4. PARACETAMOL [Concomitant]
     Active Substance: ACETAMINOPHEN
  5. SALBUTAMOL [Concomitant]
     Active Substance: ALBUTEROL
  6. TIOTROPIUM [Concomitant]
     Active Substance: TIOTROPIUM
  7. ZOPICLONE [Concomitant]
     Active Substance: ZOPICLONE
  8. PROCYCLIDINE [Concomitant]
     Active Substance: PROCYCLIDINE
  9. FUROSEMIDE. [Concomitant]
     Active Substance: FUROSEMIDE

REACTIONS (4)
  - Dysarthria [Recovering/Resolving]
  - Cardiac failure congestive [Unknown]
  - Salivary hypersecretion [Not Recovered/Not Resolved]
  - Lethargy [Recovering/Resolving]

NARRATIVE: CASE EVENT DATE: 20180321
